FAERS Safety Report 8729498 (Version 4)
Quarter: 2013Q2

REPORT INFORMATION
  Report Type: Spontaneous
  Country: US (occurrence: US)
  Receive Date: 20120817
  Receipt Date: 20130510
  Transmission Date: 20140414
  Serious: Yes (Hospitalization)
  Sender: FDA-Public Use
  Company Number: US-B.I. PHARMACEUTICALS,INC./RIDGEFIELD-2012-BP-18729BP

PATIENT
  Age: 70 Year
  Sex: Female
  Weight: 62.14 kg

DRUGS (19)
  1. PRADAXA [Suspect]
     Indication: ATRIAL FIBRILLATION
     Dosage: 300 MG
     Route: 048
     Dates: start: 20101111, end: 20110705
  2. CLONAZEPAM [Concomitant]
  3. PANTOPRAZOLE [Concomitant]
  4. BACTRIM DS [Concomitant]
     Indication: URINARY TRACT INFECTION
  5. CHOLESTYRAMINE [Concomitant]
     Dosage: 4 MG
     Route: 048
     Dates: start: 20110511
  6. VITAMIN C [Concomitant]
     Dosage: 500 MG
     Route: 048
     Dates: start: 20110226
  7. FERROUS SULFATE [Concomitant]
     Dosage: 975 MG
     Route: 048
     Dates: start: 20110226
  8. PROTONIX [Concomitant]
     Dosage: 80 MG
     Route: 048
     Dates: start: 20110226
  9. ISOSORBIDE DINITRATE [Concomitant]
     Dosage: 60 MG
     Route: 048
  10. VITAMIN D [Concomitant]
  11. BISOPROLOL FUMARATE [Concomitant]
  12. CRESTOR [Concomitant]
     Dosage: 20 MG
  13. IMDUR [Concomitant]
  14. ASPIRIN [Concomitant]
  15. CO-Q-10 [Concomitant]
     Dosage: 200 MG
  16. MULTIVITAMINS [Concomitant]
  17. FLUOXETINE HCL [Concomitant]
     Dosage: 20 MG
  18. ZOLPIDEM TARTRATE [Concomitant]
     Dosage: 10 MG
  19. CLONAZEPAM [Concomitant]
     Dosage: 0.5 MG

REACTIONS (5)
  - Upper gastrointestinal haemorrhage [Unknown]
  - Lower gastrointestinal haemorrhage [Not Recovered/Not Resolved]
  - Shock haemorrhagic [Unknown]
  - Coagulopathy [Unknown]
  - Anaemia [Not Recovered/Not Resolved]
